FAERS Safety Report 16985371 (Version 2)
Quarter: 2019Q4

REPORT INFORMATION
  Report Type: Spontaneous
  Country: US (occurrence: US)
  Receive Date: 20191101
  Receipt Date: 20191129
  Transmission Date: 20200122
  Serious: Yes (Life-Threatening, Hospitalization, Other)
  Sender: FDA-Public Use
  Company Number: US-ASTRAZENECA-2019SF50341

PATIENT
  Age: 76 Year
  Sex: Female
  Weight: 77.1 kg

DRUGS (2)
  1. ASPIRIN. [Concomitant]
     Active Substance: ASPIRIN
     Dosage: 81.0MG UNKNOWN
  2. BRILINTA [Suspect]
     Active Substance: TICAGRELOR
     Indication: DEVICE EMBOLISATION
     Dosage: 60.0MG UNKNOWN
     Route: 048
     Dates: start: 20190606, end: 20190623

REACTIONS (5)
  - Vascular stent thrombosis [Unknown]
  - Cerebrovascular accident [Unknown]
  - Aneurysm ruptured [Unknown]
  - Platelet count decreased [Unknown]
  - Intracranial aneurysm [Unknown]

NARRATIVE: CASE EVENT DATE: 2019
